FAERS Safety Report 7997875-6 (Version None)
Quarter: 2011Q4

REPORT INFORMATION
  Report Type: 
  Country: None (occurrence: None)
  Receive Date: 20111221
  Receipt Date: 20110324
  Transmission Date: 20120403
  Serious: No
  Sender: FDA-Public Use
  Company Number: US-PFIZER INC-K201100347

PATIENT
  Age: 32 Year
  Sex: Female

DRUGS (11)
  1. EPIPEN [Suspect]
     Indication: ANAPHYLACTIC REACTION
     Dosage: 0.3 MG, SINGLE
     Route: 030
     Dates: start: 20110321, end: 20110321
  2. TRAZODONE [Concomitant]
     Dosage: UNK
  3. EPIPEN [Suspect]
     Dosage: 0.3 MG, SINGLE
     Route: 030
     Dates: start: 20110321, end: 20110321
  4. METFORMIN [Concomitant]
     Dosage: UNK
  5. PREDNISONE [Concomitant]
     Dosage: UNK
  6. KEPPRA [Concomitant]
     Dosage: UNK
  7. HUMULIN R [Concomitant]
     Dosage: UNK
  8. TWINJECT 0.3 [Concomitant]
     Indication: ANAPHYLACTIC REACTION
     Dosage: UNK
  9. CYMBALTA [Concomitant]
     Dosage: UNK
  10. OXYCODONE [Concomitant]
     Dosage: UNK
  11. SOMA [Concomitant]
     Dosage: UNK

REACTIONS (1)
  - DRUG INEFFECTIVE [None]
